FAERS Safety Report 18067512 (Version 2)
Quarter: 2020Q4

REPORT INFORMATION
  Report Type: Spontaneous
  Country: DE (occurrence: DE)
  Receive Date: 20200724
  Receipt Date: 20201006
  Transmission Date: 20210113
  Serious: Yes (Death)
  Sender: FDA-Public Use
  Company Number: DE-UNICHEM PHARMACEUTICALS (USA) INC-UCM202007-000798

PATIENT
  Age: 55 Year
  Sex: Female

DRUGS (11)
  1. ALLOPURINOL. [Suspect]
     Active Substance: ALLOPURINOL
     Indication: GOUT
     Dosage: UNKNOWN
  2. AGGRENOX [Concomitant]
     Active Substance: ASPIRIN\DIPYRIDAMOLE
     Indication: PRODUCT USED FOR UNKNOWN INDICATION
     Dosage: UNKNOWN
  3. COLCHYSAT [Concomitant]
     Active Substance: COLCHICUM AUTUMNALE FLOWER\HERBALS
     Indication: PRODUCT USED FOR UNKNOWN INDICATION
     Dosage: UNKNOWN
  4. METOPROLOL. [Concomitant]
     Active Substance: METOPROLOL
     Indication: PRODUCT USED FOR UNKNOWN INDICATION
     Dosage: UNKNOWN
  5. QUENSYL [Concomitant]
     Active Substance: HYDROXYCHLOROQUINE
     Indication: PRODUCT USED FOR UNKNOWN INDICATION
     Dosage: UNKNOWN
  6. PREDNISONE. [Concomitant]
     Active Substance: PREDNISONE
     Indication: PRODUCT USED FOR UNKNOWN INDICATION
     Dosage: UNKNOWN
  7. AZATHIOPRINE. [Suspect]
     Active Substance: AZATHIOPRINE
     Indication: VASCULITIS
  8. HYDROCHLOROTHIAZIDE. [Concomitant]
     Active Substance: HYDROCHLOROTHIAZIDE
     Indication: PRODUCT USED FOR UNKNOWN INDICATION
     Dosage: UNKNOWN
  9. DEKRISTOL [Concomitant]
     Active Substance: CHOLECALCIFEROL
     Indication: PRODUCT USED FOR UNKNOWN INDICATION
     Dosage: UNKNOWN
  10. LEUCOVORIN. [Concomitant]
     Active Substance: LEUCOVORIN
     Indication: LEUKOPENIA
     Dosage: UNKNOWN
  11. RAMIPRIL. [Concomitant]
     Active Substance: RAMIPRIL
     Indication: PRODUCT USED FOR UNKNOWN INDICATION
     Dosage: UNKNOWN

REACTIONS (17)
  - Pneumonia [Fatal]
  - Cholelithiasis [Fatal]
  - Renal failure [Fatal]
  - Sepsis [Fatal]
  - Speech disorder [Fatal]
  - Skin ulcer [Fatal]
  - General physical health deterioration [Fatal]
  - Coagulopathy [Fatal]
  - Cerebral infarction [Fatal]
  - Cholecystitis acute [Fatal]
  - Cerebral ischaemia [Fatal]
  - Pancytopenia [Fatal]
  - Blindness cortical [Fatal]
  - Drug interaction [Fatal]
  - Abscess limb [Fatal]
  - Seizure [Fatal]
  - Gingival bleeding [Fatal]
